FAERS Safety Report 17427433 (Version 1)
Quarter: 2020Q1

REPORT INFORMATION
  Report Type: Spontaneous
  Country: US (occurrence: US)
  Receive Date: 20200218
  Receipt Date: 20200218
  Transmission Date: 20200409
  Serious: No
  Sender: FDA-Public Use
  Company Number: NVSC2020US041888

PATIENT
  Sex: Female

DRUGS (3)
  1. COLESTYRAMINE [Suspect]
     Active Substance: CHOLESTYRAMINE
     Indication: DETOXIFICATION
     Dosage: UNK UNK, QD(1 SCOOP)
     Route: 048
     Dates: start: 20200101
  2. COLESTYRAMINE [Suspect]
     Active Substance: CHOLESTYRAMINE
     Dosage: UNK, QD(THREE QUARTERS OF A SCOOP)
     Route: 048
  3. COLESTYRAMINE [Suspect]
     Active Substance: CHOLESTYRAMINE
     Dosage: UNK, QD(HALF SCOOP)
     Route: 048

REACTIONS (7)
  - Fatigue [Unknown]
  - Swelling [Unknown]
  - Musculoskeletal stiffness [Unknown]
  - Drug intolerance [Unknown]
  - Gastrooesophageal reflux disease [Unknown]
  - Abdominal discomfort [Unknown]
  - Pain [Unknown]
